FAERS Safety Report 5402780-5 (Version None)
Quarter: 2007Q3

REPORT INFORMATION
  Report Type: 
  Country: None (occurrence: None)
  Receive Date: 20070730
  Receipt Date: 20070730
  Transmission Date: 20080115
  Serious: Yes (Hospitalization)
  Sender: FDA-Public Use
  Company Number: None

PATIENT
  Sex: Female
  Weight: 49.82 kg

DRUGS (2)
  1. CARBOPLATIN [Suspect]
     Dosage: 606 MG
  2. TAXOL [Suspect]
     Dosage: 250 MG

REACTIONS (5)
  - BIOPSY CHEST WALL ABNORMAL [None]
  - CHEST X-RAY ABNORMAL [None]
  - DYSPNOEA [None]
  - HAEMOGLOBIN DECREASED [None]
  - MALIGNANT PLEURAL EFFUSION [None]
